FAERS Safety Report 7789637-X (Version None)
Quarter: 2011Q3

REPORT INFORMATION
  Report Type: 
  Country: None (occurrence: None)
  Receive Date: 20110930
  Receipt Date: 20110927
  Transmission Date: 20111222
  Serious: Yes (Hospitalization, Other)
  Sender: FDA-Public Use
  Company Number: US-MERCK-1109USA03037

PATIENT
  Age: 86 Year
  Sex: Male

DRUGS (5)
  1. FOSAMAX [Suspect]
     Indication: PROSTATE CANCER
     Route: 048
     Dates: start: 20020101, end: 20100201
  2. BLOOD THINNER (UNSPECIFIED) [Concomitant]
     Route: 065
  3. FOSAMAX [Suspect]
     Indication: HORMONE THERAPY
     Route: 048
     Dates: start: 20020101, end: 20100201
  4. AMIODARONE [Concomitant]
     Route: 065
  5. INSULIN [Concomitant]
     Indication: DIABETES MELLITUS
     Route: 065

REACTIONS (3)
  - FEMUR FRACTURE [None]
  - DEVICE ISSUE [None]
  - FALL [None]
